FAERS Safety Report 5832703-6 (Version None)
Quarter: 2008Q3

REPORT INFORMATION
  Report Type: 
  Country: None (occurrence: None)
  Receive Date: 20080731
  Receipt Date: 20080723
  Transmission Date: 20090109
  Serious: Yes (Life-Threatening, Other)
  Sender: FDA-Public Use
  Company Number: A-JP2006-12155

PATIENT
  Age: 14 Year
  Sex: Female
  Weight: 44 kg

DRUGS (9)
  1. TRACLEER [Suspect]
     Indication: PULMONARY ARTERIAL HYPERTENSION
     Dosage: 31.25 MG, BID, ORAL, 46.875 MG, BID, ORAL, 31.25 MG, BID, ORAL,  62.5 MG, BID, ORAL
     Route: 048
     Dates: start: 20060406, end: 20060708
  2. TRACLEER [Suspect]
     Indication: PULMONARY ARTERIAL HYPERTENSION
     Dosage: 31.25 MG, BID, ORAL, 46.875 MG, BID, ORAL, 31.25 MG, BID, ORAL,  62.5 MG, BID, ORAL
     Route: 048
     Dates: start: 20060709, end: 20060710
  3. TRACLEER [Suspect]
     Indication: PULMONARY ARTERIAL HYPERTENSION
     Dosage: 31.25 MG, BID, ORAL, 46.875 MG, BID, ORAL, 31.25 MG, BID, ORAL,  62.5 MG, BID, ORAL
     Route: 048
     Dates: start: 20060711, end: 20060717
  4. TRACLEER [Suspect]
     Indication: PULMONARY ARTERIAL HYPERTENSION
     Dosage: 31.25 MG, BID, ORAL, 46.875 MG, BID, ORAL, 31.25 MG, BID, ORAL,  62.5 MG, BID, ORAL
     Route: 048
     Dates: start: 20060718, end: 20061101
  5. TRACLEER [Suspect]
     Indication: PULMONARY ARTERIAL HYPERTENSION
     Dosage: 31.25 MG, BID, ORAL, 46.875 MG, BID, ORAL, 31.25 MG, BID, ORAL,  62.5 MG, BID, ORAL
     Route: 048
     Dates: start: 20061102
  6. DIGOXIN [Concomitant]
  7. OXYGEN (OXYGEN) [Concomitant]
  8. PRAZOSIN GITS [Concomitant]
  9. ALLOPURINOL [Concomitant]

REACTIONS (9)
  - ALANINE AMINOTRANSFERASE INCREASED [None]
  - ASPARTATE AMINOTRANSFERASE INCREASED [None]
  - BLOOD BILIRUBIN INCREASED [None]
  - BRADYCARDIA [None]
  - CARDIAC FAILURE [None]
  - CYANOSIS [None]
  - DISEASE PROGRESSION [None]
  - HEPATIC FUNCTION ABNORMAL [None]
  - PULMONARY HYPERTENSION [None]
